FAERS Safety Report 16196705 (Version 2)
Quarter: 2019Q3

REPORT INFORMATION
  Report Type: Report from Study
  Country: ZA (occurrence: ZA)
  Receive Date: 20190415
  Receipt Date: 20190814
  Transmission Date: 20191004
  Serious: Yes (Hospitalization)
  Sender: FDA-Public Use
  Company Number: ZA-SA-2019SA056173

PATIENT
  Age: 56 Year
  Sex: Male

DRUGS (7)
  1. TOUJEO [Suspect]
     Active Substance: INSULIN GLARGINE
     Dosage: 15 U, HS
     Dates: start: 20190208
  2. NO STUDY DRUG GIVEN [Suspect]
     Active Substance: INVESTIGATIONAL PRODUCT
     Dosage: UNK
  3. GLICLAZIDE [Concomitant]
     Active Substance: GLICLAZIDE
     Dosage: 30 MG, QD (BEFORE BREAKFAST)
     Dates: start: 20190226
  4. DAPAMAX [Concomitant]
     Dosage: 2.5 MG, AFTER BREAKFAST
     Dates: start: 20190226
  5. METFORMIN [Concomitant]
     Active Substance: METFORMIN HYDROCHLORIDE
     Dosage: 1000 MG, QD (BEFORE BREAKFAST)
     Dates: start: 20180101
  6. MENGEN [Concomitant]
     Active Substance: METFORMIN HYDROCHLORIDE
     Dosage: 1000 MG, BID (AFTER SUPPER NAD AFER BREAKFAST)
     Dates: start: 20190226
  7. ECOTRIN [Concomitant]
     Active Substance: ASPIRIN
     Dosage: 81 MG, QD (AFTER BREAKFAST)
     Dates: start: 20190226

REACTIONS (3)
  - Injection site discolouration [Not Recovered/Not Resolved]
  - Muscle spasms [Not Recovered/Not Resolved]
  - Eye operation [Unknown]
